FAERS Safety Report 16629234 (Version 2)
Quarter: 2019Q3

REPORT INFORMATION
  Report Type: Spontaneous
  Country: BR (occurrence: BR)
  Receive Date: 20190725
  Receipt Date: 20190802
  Transmission Date: 20191004
  Serious: Yes (Other)
  Sender: FDA-Public Use
  Company Number: BR-B.I. PHARMACEUTICALS,INC./RIDGEFIELD-2019-BI-031115

PATIENT
  Age: 84 Year
  Sex: Male
  Weight: 80 kg

DRUGS (10)
  1. LISINOPRIL. [Concomitant]
     Active Substance: LISINOPRIL
     Indication: CARDIAC FAILURE
     Route: 065
     Dates: end: 20190723
  2. ESPIRONOLACTONA [Concomitant]
     Active Substance: SPIRONOLACTONE
     Indication: CARDIAC FAILURE
     Route: 065
     Dates: end: 20190723
  3. PRADAXA [Suspect]
     Active Substance: DABIGATRAN ETEXILATE MESYLATE
     Indication: CARDIAC FAILURE
     Route: 048
     Dates: start: 20190725
  4. FUROSEMIDA [Concomitant]
     Active Substance: FUROSEMIDE
     Route: 065
     Dates: start: 20190726
  5. PRADAXA [Suspect]
     Active Substance: DABIGATRAN ETEXILATE MESYLATE
     Indication: ATRIAL FIBRILLATION
     Route: 048
     Dates: end: 20190722
  6. CARVEDILOL. [Concomitant]
     Active Substance: CARVEDILOL
     Route: 065
     Dates: start: 20190726
  7. ESPIRONOLACTONA [Concomitant]
     Active Substance: SPIRONOLACTONE
     Route: 065
     Dates: start: 20190726
  8. LISINOPRIL. [Concomitant]
     Active Substance: LISINOPRIL
     Route: 065
     Dates: start: 20190726
  9. FUROSEMIDA [Concomitant]
     Active Substance: FUROSEMIDE
     Indication: CARDIAC FAILURE
     Route: 065
     Dates: end: 20190723
  10. CARVEDILOL. [Concomitant]
     Active Substance: CARVEDILOL
     Indication: CARDIAC FAILURE
     Route: 065
     Dates: end: 20190723

REACTIONS (2)
  - Cardiac failure [Unknown]
  - Obstruction gastric [Not Recovered/Not Resolved]

NARRATIVE: CASE EVENT DATE: 20190723
